FAERS Safety Report 8380754-2 (Version None)
Quarter: 2012Q2

REPORT INFORMATION
  Report Type: 
  Country: None (occurrence: None)
  Receive Date: 20120507
  Receipt Date: 20120423
  Transmission Date: 20120825
  Serious: Yes (Life-Threatening, Hospitalization)
  Sender: FDA-Public Use
  Company Number: 2012031776

PATIENT
  Sex: Male
  Weight: 106.5953 kg

DRUGS (1)
  1. HIZENTRA [Suspect]
     Indication: IMMUNODEFICIENCY COMMON VARIABLE
     Dosage: (75 ML 1X/WEEK SUBCUTANEOUS)
     Route: 058
     Dates: start: 20100618, end: 20120113

REACTIONS (1)
  - IDIOPATHIC THROMBOCYTOPENIC PURPURA [None]
